FAERS Safety Report 7833360 (Version 3)
Quarter: 2016Q3

REPORT INFORMATION
  Report Type: Spontaneous
  Country: AU (occurrence: AU)
  Receive Date: 20110228
  Receipt Date: 20160705
  Transmission Date: 20161109
  Serious: Yes (Other)
  Sender: FDA-Public Use
  Company Number: PHBS2009AU00885

PATIENT
  Age: 50 Year
  Sex: Male

DRUGS (7)
  1. CICLOSPORIN [Suspect]
     Active Substance: CYCLOSPORINE
     Indication: IMMUNOSUPPRESSANT DRUG THERAPY
  2. PREDNISOLONE. [Suspect]
     Active Substance: PREDNISOLONE
     Indication: IMMUNOSUPPRESSANT DRUG THERAPY
  3. HYDRALAZINE [Concomitant]
     Active Substance: HYDRALAZINE HYDROCHLORIDE
     Indication: HYPERTENSION
     Route: 065
  4. CICLOSPORIN [Suspect]
     Active Substance: CYCLOSPORINE
     Indication: LUNG TRANSPLANT
     Dosage: 400 MG, UNK
     Route: 048
     Dates: start: 20050514, end: 20050524
  5. MYCOPHENOLATE MOFETIL. [Suspect]
     Active Substance: MYCOPHENOLATE MOFETIL
     Indication: LUNG TRANSPLANT
     Dosage: 2 G, UNK
     Route: 048
     Dates: start: 20050514
  6. MYCOPHENOLATE MOFETIL. [Suspect]
     Active Substance: MYCOPHENOLATE MOFETIL
     Indication: IMMUNOSUPPRESSANT DRUG THERAPY
  7. PREDNISOLONE. [Suspect]
     Active Substance: PREDNISOLONE
     Indication: LUNG TRANSPLANT
     Dosage: WEANING REGIMEN
     Route: 065
     Dates: start: 20050514

REACTIONS (11)
  - Coagulopathy [Unknown]
  - Depressed level of consciousness [Recovered/Resolved]
  - Blood pressure abnormal [Recovered/Resolved]
  - Hypotonia [Unknown]
  - Pericardial haemorrhage [Unknown]
  - Haemorrhage [Unknown]
  - Posterior reversible encephalopathy syndrome [Recovered/Resolved]
  - Complications of transplanted lung [Unknown]
  - Restlessness [Unknown]
  - Dyskinesia [Unknown]
  - Immunosuppressant drug level decreased [Unknown]

NARRATIVE: CASE EVENT DATE: 20050524
